FAERS Safety Report 6213000-6 (Version None)
Quarter: 2009Q2

REPORT INFORMATION
  Report Type: 
  Country: None (occurrence: None)
  Receive Date: 20090601
  Receipt Date: 20090518
  Transmission Date: 20091009
  Serious: Yes (Death)
  Sender: FDA-Public Use
  Company Number: 2008AL011261

PATIENT
  Age: 71 Year
  Sex: Male

DRUGS (24)
  1. DIGOXIN [Suspect]
     Dosage: 0.25MG, DAILY, PO
     Route: 048
     Dates: start: 20020409, end: 20080131
  2. PRINIVIL [Concomitant]
  3. AVANDIA [Concomitant]
  4. COUMADIN [Concomitant]
  5. TRIMOX [Concomitant]
  6. METFORMIN [Concomitant]
  7. FUROSEMIDE [Concomitant]
  8. METOPROLOL SUCCINATE [Concomitant]
  9. LISINOPRIL [Concomitant]
  10. KENALOG AEROSOL [Concomitant]
  11. METOLAZONE [Concomitant]
  12. INSPRA [Concomitant]
  13. NITROGLYCERIN [Concomitant]
  14. HYDROCHLOROTHIAZIDE [Concomitant]
  15. POTASSIUM CHLORIDE [Concomitant]
  16. CHLORHEXIDINE GLUCONATE [Concomitant]
  17. OSMOPREP [Concomitant]
  18. AMIODARONE HCL [Concomitant]
  19. NOVOLIN [Concomitant]
  20. SIMVASTATIN [Concomitant]
  21. GLIPIZIDE [Concomitant]
  22. TOPROL-XL [Concomitant]
  23. SPIRONOLACTONE [Concomitant]
  24. NEXIUM [Concomitant]

REACTIONS (17)
  - ANHEDONIA [None]
  - CARDIO-RESPIRATORY ARREST [None]
  - CARDIOGENIC SHOCK [None]
  - CHEST PAIN [None]
  - CORONARY ARTERY DISEASE [None]
  - DYSPNOEA [None]
  - ECONOMIC PROBLEM [None]
  - EMOTIONAL DISORDER [None]
  - EXPOSURE TO TOXIC AGENT [None]
  - HYPERHIDROSIS [None]
  - INJURY [None]
  - MALAISE [None]
  - MENTAL DISORDER [None]
  - PAIN [None]
  - PALPITATIONS [None]
  - SYNCOPE [None]
  - UNEVALUABLE EVENT [None]
